FAERS Safety Report 8172946-2 (Version None)
Quarter: 2012Q1

REPORT INFORMATION
  Report Type: 
  Country: None (occurrence: None)
  Receive Date: 20120104
  Receipt Date: 20111110
  Transmission Date: 20120608
  Serious: No
  Sender: FDA-Public Use
  Company Number: 2011HGS-002770

PATIENT
  Age: 41 Year
  Sex: Female
  Weight: 63.5036 kg

DRUGS (10)
  1. PROTONIX [Concomitant]
  2. LYRICA [Concomitant]
  3. PLAQUENIL (HYDROXYCHLOROQUINE SULFATE) (HYDROXYCHLOROQUINE SULFATE) [Concomitant]
  4. ESTRADIOL [Concomitant]
  5. NEXIUM [Concomitant]
  6. SYNTHROID (LEVOTHYROXINE SODIUM) (LEVOTHYROXINE SODIUM) [Concomitant]
  7. RESTORIL (TEMAZEPAM) (TEMAZEPAM) [Concomitant]
  8. CELEXA [Concomitant]
  9. BENLYSTA [Suspect]
     Indication: SYSTEMIC LUPUS ERYTHEMATOSUS
     Dosage: INTRAVENOUS DRIP
     Route: 041
     Dates: start: 20110701, end: 20110701
  10. TRAZODONE (TRAZODONE) (TRAZODONE) [Concomitant]

REACTIONS (4)
  - PYREXIA [None]
  - PAIN [None]
  - FATIGUE [None]
  - NAUSEA [None]
